FAERS Safety Report 4846302-6 (Version None)
Quarter: 2005Q4

REPORT INFORMATION
  Report Type: 
  Country: None (occurrence: None)
  Receive Date: 20051130
  Receipt Date: 20051116
  Transmission Date: 20060501
  Serious: Yes (Hospitalization)
  Sender: FDA-Public Use
  Company Number: 200511IM000738

PATIENT
  Age: 61 Year
  Sex: Female

DRUGS (3)
  1. INFERGEN [Suspect]
     Indication: HEPATITIS C VIRUS
     Dosage: 15 UG, QD, SUBCUTANEOUS
     Route: 058
     Dates: start: 20050616
  2. RIBAVIRIN [Concomitant]
  3. LEXAPRO [Concomitant]

REACTIONS (1)
  - APHASIA [None]
